FAERS Safety Report 15612980 (Version 3)
Quarter: 2020Q3

REPORT INFORMATION
  Report Type: Report from Study
  Country: TR (occurrence: TR)
  Receive Date: 20181113
  Receipt Date: 20181212
  Transmission Date: 20201105
  Serious: Yes (Hospitalization)
  Sender: FDA-Public Use
  Company Number: TR-JNJFOC-20181106477

PATIENT
  Age: 80 Year
  Sex: Male
  Weight: 74 kg

DRUGS (9)
  1. IBRUTINIB [Suspect]
     Active Substance: IBRUTINIB
     Indication: LYMPHOCYTIC LYMPHOMA
     Route: 048
     Dates: start: 20181120
  2. JANUVIA [Concomitant]
     Active Substance: SITAGLIPTIN PHOSPHATE
     Indication: DIABETES MELLITUS
     Route: 048
     Dates: start: 2003
  3. IBRUTINIB [Suspect]
     Active Substance: IBRUTINIB
     Indication: CHRONIC LYMPHOCYTIC LEUKAEMIA
     Route: 048
     Dates: start: 20181120
  4. CO?DIOVAN [Concomitant]
     Active Substance: HYDROCHLOROTHIAZIDE\VALSARTAN
     Indication: HYPERTENSION
     Route: 048
     Dates: start: 1998
  5. VENETOCLAX. [Suspect]
     Active Substance: VENETOCLAX
     Indication: CHRONIC LYMPHOCYTIC LEUKAEMIA
     Route: 048
  6. VENETOCLAX. [Suspect]
     Active Substance: VENETOCLAX
     Indication: LYMPHOCYTIC LYMPHOMA
     Route: 048
  7. IBRUTINIB [Suspect]
     Active Substance: IBRUTINIB
     Indication: CHRONIC LYMPHOCYTIC LEUKAEMIA
     Route: 048
     Dates: start: 20181008, end: 20181103
  8. IBRUTINIB [Suspect]
     Active Substance: IBRUTINIB
     Indication: LYMPHOCYTIC LYMPHOMA
     Route: 048
     Dates: start: 20181008, end: 20181103
  9. ALLOPURINOL. [Concomitant]
     Active Substance: ALLOPURINOL
     Indication: PROPHYLAXIS
     Route: 048
     Dates: start: 20181005, end: 20181014

REACTIONS (2)
  - Diarrhoea [Recovered/Resolved]
  - Ecchymosis [Recovered/Resolved]

NARRATIVE: CASE EVENT DATE: 20181101
